FAERS Safety Report 4335844-8 (Version None)
Quarter: 2004Q2

REPORT INFORMATION
  Report Type: 
  Country: None (occurrence: None)
  Receive Date: 20040409
  Receipt Date: 20040406
  Transmission Date: 20050107
  Serious: Yes (Life-Threatening, Hospitalization, Other)
  Sender: FDA-Public Use
  Company Number: PHNU2004DE01458

PATIENT
  Age: 22 Year
  Sex: Male

DRUGS (2)
  1. TRILEPTAL [Suspect]
     Indication: SIMPLE PARTIAL SEIZURES
     Dosage: 600 MG, BID
     Route: 048
     Dates: start: 20010201, end: 20040401
  2. NOVALGIN                                /SCH/ [Concomitant]
     Indication: BONE MARROW TOXICITY
     Dosage: UNK, PRN
     Route: 048
     Dates: end: 20040401

REACTIONS (8)
  - AGRANULOCYTOSIS [None]
  - BONE MARROW TOXICITY [None]
  - DRUG INEFFECTIVE [None]
  - GINGIVAL ABSCESS [None]
  - PYREXIA [None]
  - SEPSIS [None]
  - SIMPLE PARTIAL SEIZURES [None]
  - URTICARIA [None]
